FAERS Safety Report 9341461 (Version 2)
Quarter: 2013Q3

REPORT INFORMATION
  Report Type: Spontaneous
  Country: US (occurrence: US)
  Receive Date: 20130611
  Receipt Date: 20130819
  Transmission Date: 20140515
  Serious: Yes (Hospitalization)
  Sender: FDA-Public Use
  Company Number: US-ELI_LILLY_AND_COMPANY-US201306000362

PATIENT
  Age: 74 Year
  Sex: Female

DRUGS (7)
  1. HUMALOG LISPRO [Suspect]
     Indication: TYPE 1 DIABETES MELLITUS
     Dosage: UNK UNK, UNKNOWN
     Dates: start: 2002
  2. HUMALOG LISPRO [Suspect]
     Dosage: UNK, UNKNOWN
  3. CALCIUM + VITAMIN D [Concomitant]
     Dosage: 600 MG, BID
  4. CELEXA [Concomitant]
     Dosage: 1 DF, QD
  5. VITAMIN B3 [Concomitant]
     Dosage: 1000 U, QD
  6. FISH OIL [Concomitant]
     Dosage: 2 DF, QD
  7. SIMVASTATIN [Concomitant]
     Dosage: 10 MG, QD

REACTIONS (4)
  - Diabetic ketoacidosis [Recovered/Resolved]
  - Malaise [Recovered/Resolved]
  - Blood glucose increased [Recovered/Resolved]
  - Drug ineffective [Unknown]
